FAERS Safety Report 23643274 (Version 1)
Quarter: 2024Q1

REPORT INFORMATION
  Report Type: Spontaneous
  Country: DE (occurrence: DE)
  Receive Date: 20240318
  Receipt Date: 20240318
  Transmission Date: 20240409
  Serious: Yes (Other)
  Sender: FDA-Public Use
  Company Number: DE-002147023-NVSC2024DE056054

PATIENT
  Age: 85 Year
  Sex: Male

DRUGS (2)
  1. AZOPT [Suspect]
     Active Substance: BRINZOLAMIDE
     Indication: Glaucoma
     Dosage: 1 DRP (2X DAILY) (IN BOTH EYES)
     Route: 047
  2. TRAVATAN [Suspect]
     Active Substance: TRAVOPROST
     Indication: Glaucoma
     Dosage: UNK (1X DAILY) (BOTH EYES)
     Route: 047

REACTIONS (6)
  - Renal failure [Unknown]
  - Cardiac failure [Unknown]
  - Osteoarthritis [Unknown]
  - Total lung capacity decreased [Unknown]
  - Tooth disorder [Unknown]
  - Cyst [Unknown]
